FAERS Safety Report 23607217 (Version 1)
Quarter: 2024Q1

REPORT INFORMATION
  Report Type: Spontaneous
  Country: GB (occurrence: GB)
  Receive Date: 20240307
  Receipt Date: 20240307
  Transmission Date: 20240409
  Serious: Yes (Other)
  Sender: FDA-Public Use
  Company Number: GB-JNJFOC-20240308252

PATIENT
  Age: 24 Year
  Sex: Female
  Weight: 90 kg

DRUGS (4)
  1. ACETAMINOPHEN [Suspect]
     Active Substance: ACETAMINOPHEN
     Indication: Product used for unknown indication
     Route: 065
  2. PSEUDOEPHEDRINE HYDROCHLORIDE [Suspect]
     Active Substance: PSEUDOEPHEDRINE HYDROCHLORIDE
     Indication: Product used for unknown indication
     Route: 065
  3. DESOGESTREL [Concomitant]
     Active Substance: DESOGESTREL
     Indication: Product used for unknown indication
     Route: 065
  4. BECLOMETHASONE\FORMOTEROL [Concomitant]
     Active Substance: BECLOMETHASONE\FORMOTEROL
     Indication: Product used for unknown indication
     Route: 065

REACTIONS (9)
  - Delusion [Recovered/Resolved]
  - Tremor [Recovered/Resolved]
  - Migraine [Recovered/Resolved]
  - Vision blurred [Recovered/Resolved]
  - Photopsia [Recovered/Resolved]
  - Hypoaesthesia [Recovered/Resolved]
  - Photosensitivity reaction [Recovered/Resolved]
  - Cold sweat [Recovered/Resolved]
  - Hallucination [Recovered/Resolved]
